FAERS Safety Report 14294731 (Version 1)
Quarter: 2017Q4

REPORT INFORMATION
  Report Type: Other
  Country: IN (occurrence: IN)
  Receive Date: 20171218
  Receipt Date: 20171218
  Transmission Date: 20180321
  Serious: Yes (Death)
  Sender: FDA-Public Use
  Company Number: IN-ORCHID HEALTHCARE-2037263

PATIENT
  Age: 1 Day
  Sex: Female

DRUGS (1)
  1. OLANZAPINE. [Suspect]
     Active Substance: OLANZAPINE
     Indication: PSYCHOTIC SYMPTOM
     Route: 065

REACTIONS (5)
  - Infection [None]
  - Maternal drugs affecting foetus [None]
  - Death [Fatal]
  - Tracheo-oesophageal fistula [Fatal]
  - Diarrhoea [None]
